FAERS Safety Report 7729476-9 (Version None)
Quarter: 2011Q3

REPORT INFORMATION
  Report Type: 
  Country: None (occurrence: None)
  Receive Date: 20110906
  Receipt Date: 20110826
  Transmission Date: 20111222
  Serious: Yes (Hospitalization, Other)
  Sender: FDA-Public Use
  Company Number: US-JNJFOC-20110603955

PATIENT
  Sex: Female

DRUGS (3)
  1. ORTHO EVRA [Suspect]
     Indication: CONTRACEPTION
     Route: 062
     Dates: start: 20050101
  2. ORTHO EVRA [Suspect]
     Indication: VAGINAL HAEMORRHAGE
     Route: 062
     Dates: start: 20050101
  3. HYDROCHLOROTHIAZIDE [Concomitant]
     Indication: HYPERTENSION

REACTIONS (2)
  - POST THROMBOTIC SYNDROME [None]
  - DEEP VEIN THROMBOSIS [None]
